FAERS Safety Report 12812717 (Version 1)
Quarter: 2016Q4

REPORT INFORMATION
  Report Type: Spontaneous
  Country: US (occurrence: US)
  Receive Date: 20161005
  Receipt Date: 20161005
  Transmission Date: 20170207
  Serious: Yes (Life-Threatening, Hospitalization)
  Sender: FDA-Public Use
  Company Number: PHHY2016US133784

PATIENT
  Age: 64 Year
  Sex: Male

DRUGS (5)
  1. HEPARIN [Suspect]
     Active Substance: HEPARIN SODIUM
     Indication: POSTOPERATIVE CARE
     Route: 065
  2. WARFARIN [Concomitant]
     Active Substance: WARFARIN
     Indication: POSTOPERATIVE CARE
     Route: 065
  3. HEPARIN [Suspect]
     Active Substance: HEPARIN SODIUM
     Dosage: 6000 U, UNK
     Route: 040
  4. HEPARIN [Suspect]
     Active Substance: HEPARIN SODIUM
     Route: 041
  5. LEVOFLOXACIN. [Concomitant]
     Active Substance: LEVOFLOXACIN
     Indication: PNEUMONIA
     Route: 048

REACTIONS (4)
  - Heparin-induced thrombocytopenia [Recovering/Resolving]
  - Anaphylactoid reaction [Unknown]
  - Cardio-respiratory arrest [Unknown]
  - Pulseless electrical activity [Unknown]
